FAERS Safety Report 4756654-3 (Version None)
Quarter: 2005Q3

REPORT INFORMATION
  Report Type: 
  Country: None (occurrence: None)
  Receive Date: 20050830
  Receipt Date: 20050826
  Transmission Date: 20060218
  Serious: Yes (Other)
  Sender: FDA-Public Use
  Company Number: US-GLAXOSMITHKLINE-A0571903A

PATIENT
  Sex: Female

DRUGS (2)
  1. PAXIL [Suspect]
     Indication: DRUG USE FOR UNKNOWN INDICATION
     Route: 048
  2. EFFEXOR [Suspect]

REACTIONS (3)
  - INSOMNIA [None]
  - SUICIDAL IDEATION [None]
  - THINKING ABNORMAL [None]
